FAERS Safety Report 8536759-1 (Version None)
Quarter: 2012Q3

REPORT INFORMATION
  Report Type: 
  Country: None (occurrence: None)
  Receive Date: 20120725
  Receipt Date: 20120717
  Transmission Date: 20120928
  Serious: Yes (Hospitalization, Other)
  Sender: FDA-Public Use
  Company Number: JP-VERTEX PHARMACEUTICALS INC.-AE-2012-008526

PATIENT
  Age: 70 Year
  Sex: Male

DRUGS (7)
  1. TELAVIC (TELAPREVIR) [Suspect]
     Indication: HEPATITIS C
     Route: 048
     Dates: start: 20120419, end: 20120501
  2. RIBAVIRIN [Concomitant]
     Indication: HEPATITIS C
     Route: 048
     Dates: start: 20120419, end: 20120501
  3. RHYTHMY [Concomitant]
     Route: 048
  4. MEILAX [Concomitant]
     Route: 048
     Dates: start: 20120507
  5. BROTIZOLAM [Concomitant]
     Route: 048
  6. FAMOTIDINE [Concomitant]
     Route: 048
     Dates: start: 20120423, end: 20120428
  7. PEGINTERFERON ALFA-2B [Concomitant]
     Indication: HEPATITIS C
     Route: 058
     Dates: start: 20120419, end: 20120501

REACTIONS (2)
  - INGUINAL HERNIA [None]
  - DELIRIUM [None]
